FAERS Safety Report 20790923 (Version 1)
Quarter: 2022Q2

REPORT INFORMATION
  Report Type: Spontaneous
  Country: SA (occurrence: SA)
  Receive Date: 20220505
  Receipt Date: 20220505
  Transmission Date: 20220721
  Serious: Yes (Congenital Anomaly, Other)
  Sender: FDA-Public Use
  Company Number: SA-ORGANON-O2205SAU000145

PATIENT
  Sex: Male

DRUGS (1)
  1. FINASTERIDE [Suspect]
     Active Substance: FINASTERIDE
     Dosage: 2.5 MILLIGRAM, QD
     Route: 064

REACTIONS (2)
  - Hypospadias [Not Recovered/Not Resolved]
  - Foetal exposure during pregnancy [Recovered/Resolved]
